FAERS Safety Report 14747822 (Version 1)
Quarter: 2018Q2

REPORT INFORMATION
  Report Type: Spontaneous
  Country: CA (occurrence: CA)
  Receive Date: 20180411
  Receipt Date: 20180411
  Transmission Date: 20180711
  Serious: Yes (Other)
  Sender: FDA-Public Use
  Company Number: CA-PFIZER INC-2018140780

PATIENT
  Age: 25 Year
  Sex: Male

DRUGS (1)
  1. CLINDAMYCIN HCL [Suspect]
     Active Substance: CLINDAMYCIN HYDROCHLORIDE
     Dosage: 3 DF, 3X/DAY (3 CAPSULES EVERY 8 HOURS)

REACTIONS (3)
  - Abdominal pain [Unknown]
  - Frequent bowel movements [Unknown]
  - Haematochezia [Unknown]
